FAERS Safety Report 7413629-3 (Version None)
Quarter: 2011Q2

REPORT INFORMATION
  Report Type: 
  Country: None (occurrence: None)
  Receive Date: 20110413
  Receipt Date: 20110408
  Transmission Date: 20111010
  Serious: Yes (Hospitalization, Other)
  Sender: FDA-Public Use
  Company Number: PHHO2011FR00754

PATIENT
  Sex: Female
  Weight: 58 kg

DRUGS (9)
  1. CELLCEPT [Suspect]
     Indication: RENAL TRANSPLANT
     Dosage: 1.5 G, QD
     Route: 048
     Dates: start: 20100905
  2. BACTRIM [Concomitant]
     Dosage: UNK
     Dates: end: 20101123
  3. INIPOMP [Concomitant]
     Dosage: UNK
  4. PHOSPHONEUROS [Concomitant]
     Dosage: UNK
     Dates: end: 20101126
  5. EPREX [Concomitant]
  6. PREDNISONE [Suspect]
     Indication: RENAL TRANSPLANT
     Dosage: 10 MG, QD
     Route: 048
     Dates: start: 20100906, end: 20101221
  7. ROVALCYTE [Concomitant]
     Dosage: UNK
  8. TENORMIN [Concomitant]
     Dosage: UNK
  9. CYCLOSPORINE [Suspect]
     Indication: RENAL TRANSPLANT
     Dosage: 5 MG, QD
     Route: 048
     Dates: start: 20101015, end: 20101221

REACTIONS (4)
  - ANAEMIA [None]
  - GLYCOSYLATED HAEMOGLOBIN INCREASED [None]
  - NEUTROPENIA [None]
  - TRANSPLANT REJECTION [None]
